FAERS Safety Report 6720717-3 (Version None)
Quarter: 2010Q2

REPORT INFORMATION
  Report Type: 
  Country: None (occurrence: None)
  Receive Date: 20100512
  Receipt Date: 20100505
  Transmission Date: 20101027
  Serious: Yes (Hospitalization)
  Sender: FDA-Public Use
  Company Number: ES-BIOGENIDEC-2010BI006151

PATIENT
  Age: 36 Year
  Sex: Male
  Weight: 80 kg

DRUGS (6)
  1. TYSABRI [Suspect]
     Indication: MULTIPLE SCLEROSIS
     Route: 042
     Dates: start: 20091101
  2. AMANTADINE HCL [Concomitant]
  3. IBUPROFEN [Concomitant]
  4. VALIUM [Concomitant]
  5. OMEPRAZOLE [Concomitant]
  6. NOCTAMID [Concomitant]

REACTIONS (2)
  - LEUKOCYTOSIS [None]
  - PYREXIA [None]
